FAERS Safety Report 7656749-0 (Version None)
Quarter: 2011Q3

REPORT INFORMATION
  Report Type: 
  Country: None (occurrence: None)
  Receive Date: 20110804
  Receipt Date: 20110802
  Transmission Date: 20111222
  Serious: Yes (Death, Hospitalization)
  Sender: FDA-Public Use
  Company Number: US-PFIZER INC-2011177293

PATIENT
  Sex: Male

DRUGS (8)
  1. ALDACTONE [Concomitant]
     Dosage: 25 MG, UNK
  2. LEXAPRO [Concomitant]
     Dosage: 10 MG, UNK
  3. SYNTHROID [Concomitant]
     Dosage: 100 UG, UNK
  4. ABILIFY [Concomitant]
     Dosage: 2 MG, UNK
  5. SUTENT [Suspect]
     Dosage: 50 MG, 1X/DAY
     Route: 048
  6. BUSPAR [Concomitant]
     Dosage: 10 MG, UNK
  7. OMEPRAZOLE [Concomitant]
     Dosage: 10 MG, UNK
  8. GLIPIZIDE [Concomitant]
     Dosage: 2.5 MG, UNK

REACTIONS (2)
  - DYSPHAGIA [None]
  - DEATH [None]
